FAERS Safety Report 6327514-1 (Version None)
Quarter: 2009Q3

REPORT INFORMATION
  Report Type: 
  Country: None (occurrence: None)
  Receive Date: 20090825
  Receipt Date: 20090812
  Transmission Date: 20100115
  Serious: Yes (Other)
  Sender: FDA-Public Use
  Company Number: PHHY2009DE34400

PATIENT
  Sex: Male

DRUGS (1)
  1. VOLTAREND DISPERS [Suspect]
     Indication: METASTATIC PAIN
     Dosage: 50 MG, BID
     Route: 048

REACTIONS (7)
  - BLOOD URINE PRESENT [None]
  - EYE PAIN [None]
  - HEADACHE [None]
  - INTRACRANIAL PRESSURE INCREASED [None]
  - MUSCULOSKELETAL STIFFNESS [None]
  - PROTEINURIA [None]
  - VISUAL IMPAIRMENT [None]
